FAERS Safety Report 14341144 (Version 1)
Quarter: 2018Q1

REPORT INFORMATION
  Report Type: Spontaneous
  Country: FR (occurrence: FR)
  Receive Date: 20180102
  Receipt Date: 20180102
  Transmission Date: 20180509
  Serious: Yes (Hospitalization)
  Sender: FDA-Public Use
  Company Number: FR-MERCK KGAA-2038077

PATIENT
  Age: 50 Year
  Sex: Female
  Weight: 80 kg

DRUGS (1)
  1. NOVOTHYROX [Suspect]
     Active Substance: LEVOTHYROXINE SODIUM
     Indication: HYPOTHYROIDISM
     Route: 048
     Dates: start: 201703, end: 20170914

REACTIONS (19)
  - Acne [Recovering/Resolving]
  - Hot flush [Recovering/Resolving]
  - Memory impairment [Recovering/Resolving]
  - Vision blurred [Recovering/Resolving]
  - Formication [Recovering/Resolving]
  - Tachycardia [Recovering/Resolving]
  - Vomiting [Recovering/Resolving]
  - Insomnia [Recovering/Resolving]
  - Urticaria [Recovering/Resolving]
  - Weight increased [Recovering/Resolving]
  - Muscular weakness [Recovering/Resolving]
  - Vertigo [Recovering/Resolving]
  - Tetany [Recovering/Resolving]
  - Migraine [Recovering/Resolving]
  - Abdominal pain upper [Recovering/Resolving]
  - Pain in extremity [Recovering/Resolving]
  - Diffuse alopecia [Recovering/Resolving]
  - Feeling cold [Recovering/Resolving]
  - Diarrhoea [Recovering/Resolving]

NARRATIVE: CASE EVENT DATE: 20170419
